FAERS Safety Report 16617312 (Version 1)
Quarter: 2019Q3

REPORT INFORMATION
  Report Type: Report from Study
  Country: US (occurrence: US)
  Receive Date: 20190723
  Receipt Date: 20190723
  Transmission Date: 20191004
  Serious: Yes (Hospitalization)
  Sender: FDA-Public Use
  Company Number: US-UPSHER-SMITH LABORATORIES, LLC-2019USL00540

PATIENT
  Sex: Male

DRUGS (2)
  1. VIGADRONE [Suspect]
     Active Substance: VIGABATRIN
     Dosage: UNK
     Dates: start: 20190227, end: 2019
  2. VIGADRONE [Suspect]
     Active Substance: VIGABATRIN
     Dosage: 400 MG, 2X/DAY FOR 1 WEEK
     Dates: start: 2019

REACTIONS (2)
  - Fine motor skill dysfunction [Unknown]
  - Tremor [Unknown]

NARRATIVE: CASE EVENT DATE: 2019
